FAERS Safety Report 4262923-6 (Version None)
Quarter: 2004Q1

REPORT INFORMATION
  Report Type: 
  Country: None (occurrence: None)
  Receive Date: 20040102
  Receipt Date: 20040102
  Transmission Date: 20041129
  Serious: No
  Sender: FDA-Public Use
  Company Number: None

PATIENT
  Sex: Male
  Weight: 81.6475 kg

DRUGS (3)
  1. ZOLOFT [Suspect]
     Dosage: VARIED PER MORNIN ORAL
     Route: 048
     Dates: start: 20030525, end: 20030920
  2. PAROXETINE HCL [Suspect]
     Dosage: 5-60 MG''S PER MORNIN ORAL
     Route: 048
     Dates: start: 20030920, end: 20031218
  3. LEXAPRO [Suspect]
     Dosage: VARIED PER MORNING ORAL
     Route: 048
     Dates: start: 20030525, end: 20030920

REACTIONS (10)
  - ANXIETY [None]
  - CONDITION AGGRAVATED [None]
  - DEPRESSION [None]
  - DISSOCIATION [None]
  - DISTURBANCE IN ATTENTION [None]
  - DRUG INEFFECTIVE [None]
  - DRUG WITHDRAWAL SYNDROME [None]
  - FEELING ABNORMAL [None]
  - MIGRAINE [None]
  - NAUSEA [None]
